FAERS Safety Report 9592343 (Version 1)
Quarter: 2013Q4

REPORT INFORMATION
  Report Type: Spontaneous
  Country: US (occurrence: None)
  Receive Date: 20131003
  Receipt Date: 20131003
  Transmission Date: 20140711
  Serious: Yes (Disabling, Other)
  Sender: FDA-Public Use
  Company Number: None

PATIENT
  Age: 41 Year
  Sex: Male
  Weight: 68.04 kg

DRUGS (1)
  1. LEVAQUIN [Suspect]
     Indication: KLEBSIELLA INFECTION
     Dosage: 1 IV DOSE
     Route: 042

REACTIONS (9)
  - Tendon disorder [None]
  - Abasia [None]
  - Pain in extremity [None]
  - Rash [None]
  - Swelling [None]
  - Hypoaesthesia [None]
  - Paraesthesia [None]
  - Cardiovascular disorder [None]
  - Peripheral coldness [None]
